FAERS Safety Report 8956825 (Version 1)
Quarter: 2012Q4

REPORT INFORMATION
  Report Type: Spontaneous
  Country: US (occurrence: None)
  Receive Date: 20121205
  Receipt Date: 20121205
  Transmission Date: 20130627
  Serious: Yes (Hospitalization)
  Sender: FDA-Public Use
  Company Number: None

PATIENT
  Sex: Male
  Weight: 127.01 kg

DRUGS (2)
  1. CLOTRIMAZOLE AND BETAMETHASONE DIPROPIONATE [Suspect]
     Indication: ITCHING
     Dosage: Apply 2 times a day ou ears
     Dates: start: 20121031, end: 20121106
  2. CLOTRIMAZOLE AND BETAMETHASONE DIPROPIONATE [Suspect]
     Indication: RASH IN THE OUTER EAR
     Dosage: Apply 2 times a day ou ears
     Dates: start: 20121031, end: 20121106

REACTIONS (4)
  - Swollen tongue [None]
  - Hypoglossal nerve paralysis [None]
  - Swelling face [None]
  - Dizziness [None]
